FAERS Safety Report 10873788 (Version 1)
Quarter: 2015Q1

REPORT INFORMATION
  Report Type: Spontaneous
  Country: SE (occurrence: SE)
  Receive Date: 20150227
  Receipt Date: 20150227
  Transmission Date: 20150721
  Serious: Yes (Death)
  Sender: FDA-Public Use
  Company Number: SE-PFIZER INC-2014285643

PATIENT
  Sex: Male

DRUGS (2)
  1. XALKORI [Suspect]
     Active Substance: CRIZOTINIB
     Indication: NON-SMALL CELL LUNG CANCER
     Dosage: 200 MG, 2X/DAY
     Dates: start: 20140905, end: 201412
  2. XALKORI [Suspect]
     Active Substance: CRIZOTINIB
     Dosage: 250 MG, UNK
     Dates: start: 201412, end: 20141223

REACTIONS (4)
  - Disease progression [Fatal]
  - Dyspnoea [Unknown]
  - Non-small cell lung cancer [Fatal]
  - Infection [Fatal]

NARRATIVE: CASE EVENT DATE: 2014
